FAERS Safety Report 15897319 (Version 3)
Quarter: 2019Q1

REPORT INFORMATION
  Report Type: Report from Study
  Country: CZ (occurrence: CZ)
  Receive Date: 20190131
  Receipt Date: 20190220
  Transmission Date: 20190417
  Serious: Yes (Hospitalization)
  Sender: FDA-Public Use
  Company Number: CZ-REGENERON PHARMACEUTICALS, INC.-2019-15116

PATIENT

DRUGS (15)
  1. ISATUXIMAB [Suspect]
     Active Substance: ISATUXIMAB
     Indication: PLASMA CELL MYELOMA
     Dosage: 10 MG/KG
     Route: 042
  2. ZOMETA [Concomitant]
     Active Substance: ZOLEDRONIC ACID
     Indication: PROPHYLAXIS
     Dosage: UNK UNK, UNK
     Route: 042
     Dates: start: 20160628
  3. ERDOMED [Concomitant]
     Active Substance: ERDOSTEINE
     Indication: DRUG THERAPY
     Dosage: 2 DF, QD
     Route: 048
     Dates: start: 20190121
  4. GRANEGIS [Concomitant]
     Active Substance: GRANISETRON HYDROCHLORIDE
     Indication: PRODUCT USED FOR UNKNOWN INDICATION
     Dosage: 1 DF, QD
     Route: 048
     Dates: start: 20181207
  5. KODEIN [Concomitant]
     Active Substance: CODEINE PHOSPHATE
     Indication: DRUG THERAPY
     Dosage: 1 DF, QD
     Route: 048
     Dates: start: 20190121
  6. CEMIPLIMAB [Suspect]
     Active Substance: CEMIPLIMAB
     Dosage: 3 MG/KG, QOW
     Route: 042
     Dates: start: 20181123, end: 20181123
  7. ISATUXIMAB [Suspect]
     Active Substance: ISATUXIMAB
     Dosage: 10 MG/KG, QW
     Route: 042
     Dates: start: 20181123, end: 20181123
  8. MILURIT [Concomitant]
     Active Substance: ALLOPURINOL
     Indication: PROPHYLAXIS
     Dosage: UNK UNK, UNK
     Route: 048
     Dates: start: 20181123
  9. BISEPTOL [Concomitant]
     Active Substance: SULFAMETHOXAZOLE\TRIMETHOPRIM
     Indication: PROPHYLAXIS
     Dosage: UNK UNK, UNK
     Route: 048
     Dates: start: 20181123
  10. CEMIPLIMAB [Suspect]
     Active Substance: CEMIPLIMAB
     Indication: PLASMA CELL MYELOMA
     Dosage: 3 MG/KG, QOW
     Route: 042
  11. ZARZIO [Concomitant]
     Active Substance: FILGRASTIM
     Indication: PROPHYLAXIS
     Dosage: UNK UNK, UNK
     Route: 058
     Dates: start: 20181130
  12. HELICID                            /00661201/ [Concomitant]
     Active Substance: OMEPRAZOLE
     Indication: PROPHYLAXIS
     Dosage: UNK UNK, UNK
     Route: 048
     Dates: start: 20181123
  13. BINOCRIT [Concomitant]
     Active Substance: ERYTHROPOIETIN
     Indication: DRUG THERAPY
     Dosage: 40000 IU, QD
     Route: 058
     Dates: start: 20190104
  14. BELOGENT [Concomitant]
     Indication: DRUG THERAPY
     Dosage: 2 APPLICATION, QD
     Route: 061
     Dates: start: 20190121
  15. UNASYNE  [SULTAMICILLIN] [Concomitant]
     Indication: DRUG THERAPY
     Dosage: 375 MG, QD
     Route: 048
     Dates: start: 20190121

REACTIONS (1)
  - Pulmonary embolism [Recovered/Resolved]

NARRATIVE: CASE EVENT DATE: 20190123
